FAERS Safety Report 9174663 (Version 2)
Quarter: 2013Q1

REPORT INFORMATION
  Report Type: Spontaneous
  Country: GB (occurrence: None)
  Receive Date: 20130315
  Receipt Date: 20130319
  Transmission Date: 20140127
  Serious: Yes (Other)
  Sender: FDA-Public Use
  Company Number: AUR-APL-2013-02181

PATIENT
  Age: 78 Year
  Sex: Female

DRUGS (7)
  1. CLOPIDOGREL [Suspect]
     Indication: CEREBROVASCULAR ACCIDENT
     Route: 048
     Dates: start: 201201
  2. ZOMETA (ZOLEDRONIC ACID) [Suspect]
     Indication: PRODUCT USED FOR UNKNOWN INDICATION
     Dosage: 1 DOSAGE FORMS, 2 IN 1 Y), INTRAVENOUS
     Route: 042
     Dates: start: 20121207
  3. ADCAL-D3 [Concomitant]
  4. ALENDRONIC ACID (ALENDRONIC ACID) [Concomitant]
  5. ANASTROZOLE (ANASTROZOLE) [Concomitant]
  6. FELODIPINE FELODIPINE) [Concomitant]
  7. SIMVASTATIN (SIMVSTATIN) [Concomitant]

REACTIONS (4)
  - Contusion [None]
  - Drug interaction [None]
  - Drug ineffective [None]
  - Increased tendency to bruise [None]
